FAERS Safety Report 12927719 (Version 1)
Quarter: 2016Q4

REPORT INFORMATION
  Report Type: Spontaneous
  Country: US (occurrence: US)
  Receive Date: 20161109
  Receipt Date: 20161109
  Transmission Date: 20170207
  Serious: Yes (Death)
  Sender: FDA-Public Use
  Company Number: US-CONCORDIA PHARMACEUTICALS INC.-GSH201611-005609

PATIENT
  Age: 48 Year
  Sex: Female

DRUGS (5)
  1. MIRTAZAPINE. [Suspect]
     Active Substance: MIRTAZAPINE
  2. LISINOPRIL. [Suspect]
     Active Substance: LISINOPRIL
  3. CARBAMAZEPINE. [Suspect]
     Active Substance: CARBAMAZEPINE
  4. HEROIN [Suspect]
     Active Substance: DIACETYLMORPHINE
  5. CLONIDINE. [Suspect]
     Active Substance: CLONIDINE

REACTIONS (1)
  - Drug abuse [Fatal]
